FAERS Safety Report 13004324 (Version 2)
Quarter: 2017Q1

REPORT INFORMATION
  Report Type: Report from Study
  Country: None (occurrence: US)
  Receive Date: 20161207
  Receipt Date: 20170125
  Transmission Date: 20170428
  Serious: Yes (Other)
  Sender: FDA-Public Use
  Company Number: US-ABBVIE-16K-163-1796145-00

PATIENT
  Age: 61 Year
  Sex: Male
  Weight: 97.61 kg

DRUGS (1)
  1. HUMIRA [Suspect]
     Active Substance: ADALIMUMAB
     Indication: PSORIASIS
     Route: 058
     Dates: start: 201609, end: 20161115

REACTIONS (6)
  - Coronary artery occlusion [Recovered/Resolved]
  - Dyspnoea [Recovering/Resolving]
  - Coronary artery occlusion [Not Recovered/Not Resolved]
  - Impaired healing [Recovered/Resolved]
  - Skin fissures [Recovered/Resolved]
  - Chest pain [Recovering/Resolving]

NARRATIVE: CASE EVENT DATE: 2016
